FAERS Safety Report 24815031 (Version 2)
Quarter: 2025Q1

REPORT INFORMATION
  Report Type: Spontaneous
  Country: FR (occurrence: FR)
  Receive Date: 20250107
  Receipt Date: 20250123
  Transmission Date: 20250409
  Serious: Yes (Hospitalization)
  Sender: PFIZER
  Company Number: None

PATIENT
  Age: 92 Year
  Sex: Female
  Weight: 160 kg

DRUGS (5)
  1. PANTOPRAZOLE [Suspect]
     Active Substance: PANTOPRAZOLE
     Indication: Gastrointestinal haemorrhage
     Route: 042
     Dates: start: 20241127, end: 20241129
  2. PANTOPRAZOLE [Suspect]
     Active Substance: PANTOPRAZOLE
     Indication: Gastrointestinal haemorrhage
     Dosage: 40 MG, 2X/DAY
     Route: 048
     Dates: start: 20241129, end: 20241202
  3. BISOPROLOL [Concomitant]
     Active Substance: BISOPROLOL
     Indication: Tachycardia
     Dosage: 2.5 MILLIGRAM, QD
     Route: 048
     Dates: start: 20241202, end: 20241223
  4. DIGOXIN [Concomitant]
     Active Substance: DIGOXIN
     Indication: Tachycardia
     Dosage: 0.13 MILLIGRAM, QD
     Route: 048
     Dates: start: 20241202, end: 20241223
  5. FUROSEMIDE [Concomitant]
     Active Substance: FUROSEMIDE
     Indication: Brain natriuretic peptide increased
     Dosage: 40 MILLIGRAM, QD
     Route: 048
     Dates: start: 20241129, end: 20241223

REACTIONS (1)
  - Liver injury [Recovered/Resolved]

NARRATIVE: CASE EVENT DATE: 20241202
